FAERS Safety Report 9179252 (Version 2)
Quarter: 2013Q2

REPORT INFORMATION
  Report Type: Spontaneous
  Country: JP (occurrence: JP)
  Receive Date: 20130321
  Receipt Date: 20130409
  Transmission Date: 20140414
  Serious: Yes (Other)
  Sender: FDA-Public Use
  Company Number: JP-GLAXOSMITHKLINE-B0875278A

PATIENT
  Age: 59 Year
  Sex: Male

DRUGS (4)
  1. PAXIL [Suspect]
     Indication: BIPOLAR DISORDER
     Route: 048
  2. AKINETON [Concomitant]
     Route: 065
  3. LIMAS [Concomitant]
     Route: 048
  4. UNKNOWN DRUG [Concomitant]
     Route: 048

REACTIONS (2)
  - Akathisia [Recovered/Resolved]
  - Cerebral atrophy [Unknown]
